FAERS Safety Report 8834487 (Version 2)
Quarter: 2013Q1

REPORT INFORMATION
  Report Type: Spontaneous
  Country: NO (occurrence: NO)
  Receive Date: 20121010
  Receipt Date: 20130328
  Transmission Date: 20140127
  Serious: Yes (Hospitalization)
  Sender: FDA-Public Use
  Company Number: PHHY2012NO088008

PATIENT
  Sex: 0

DRUGS (1)
  1. GILENYA [Suspect]
     Route: 048

REACTIONS (2)
  - Cardiovascular disorder [Unknown]
  - Anxiety [Unknown]
